FAERS Safety Report 5332506-5 (Version None)
Quarter: 2007Q2

REPORT INFORMATION
  Report Type: 
  Country: None (occurrence: None)
  Receive Date: 20070518
  Receipt Date: 20070504
  Transmission Date: 20071010
  Serious: Yes (Hospitalization)
  Sender: FDA-Public Use
  Company Number: 023#3#2007-00001

PATIENT
  Age: 76 Year
  Sex: Male

DRUGS (4)
  1. MONOKET [Suspect]
     Indication: ANGINA PECTORIS
     Dosage: 50 MG (50 MG 1 IN 1 DAY(S))
     Route: 048
     Dates: end: 20070301
  2. DILTIAZEM HCL [Concomitant]
  3. ALBYL-ENTEROSOLUBILE (ACETYLSALICYLIC ACID, MAGNESIUM OXIDE) [Concomitant]
  4. SIMVASTATIN [Concomitant]

REACTIONS (8)
  - ANXIETY [None]
  - CARDIAC ARREST [None]
  - DIPLOPIA [None]
  - DYSPNOEA [None]
  - HEART RATE DECREASED [None]
  - HYPOTENSION [None]
  - NECK PAIN [None]
  - VERTIGO POSITIONAL [None]
